FAERS Safety Report 4750075-5 (Version None)
Quarter: 2005Q3

REPORT INFORMATION
  Report Type: 
  Country: None (occurrence: None)
  Receive Date: 20050822
  Receipt Date: 20050812
  Transmission Date: 20060218
  Serious: Yes (Disabling)
  Sender: FDA-Public Use
  Company Number: 2005091202

PATIENT
  Sex: Female
  Weight: 75 kg

DRUGS (4)
  1. AZULFIDINE [Suspect]
     Indication: PSORIATIC ARTHROPATHY
     Dosage: ORAL
     Route: 048
     Dates: start: 19950101
  2. VIANI (FLUTICASONE PROPIOANTE, SALMETEROL XINAFOATE) [Concomitant]
  3. LEVOTHYROXINE SODIUM [Concomitant]
  4. EVISTA [Concomitant]

REACTIONS (2)
  - AGEUSIA [None]
  - ANOSMIA [None]
